FAERS Safety Report 8252808-2 (Version None)
Quarter: 2012Q2

REPORT INFORMATION
  Report Type: 
  Country: None (occurrence: None)
  Receive Date: 20120402
  Receipt Date: 20111222
  Transmission Date: 20120825
  Serious: No
  Sender: FDA-Public Use
  Company Number: US-ABBOTT-11P-163-0886986-00

PATIENT
  Age: 44 Year
  Sex: Male
  Weight: 95.34 kg

DRUGS (7)
  1. VITAMIN D [Concomitant]
     Indication: VITAMIN D DECREASED
     Route: 048
  2. VITAMIN D [Concomitant]
     Route: 048
  3. ANDROGEL [Suspect]
     Indication: BLOOD TESTOSTERONE DECREASED
     Route: 061
     Dates: start: 20100101
  4. VITAMIN D [Concomitant]
     Route: 048
     Dates: end: 20111214
  5. VITAMIN D [Concomitant]
     Indication: VITAMIN D DECREASED
  6. VITAMIN D2 [Concomitant]
     Indication: VITAMIN D DECREASED
  7. VITAMIN D [Concomitant]
     Route: 048
     Dates: start: 20111214

REACTIONS (4)
  - FATIGUE [None]
  - BLOOD TESTOSTERONE DECREASED [None]
  - ASPARTATE AMINOTRANSFERASE INCREASED [None]
  - ALANINE AMINOTRANSFERASE INCREASED [None]
